FAERS Safety Report 6125658-0 (Version None)
Quarter: 2009Q1

REPORT INFORMATION
  Report Type: 
  Country: None (occurrence: None)
  Receive Date: 20090320
  Receipt Date: 20090217
  Transmission Date: 20090719
  Serious: No
  Sender: FDA-Public Use
  Company Number: US-BAYER-200910618BCC

PATIENT
  Age: 71 Year
  Sex: Female
  Weight: 52 kg

DRUGS (4)
  1. ALEVE (CAPLET) [Suspect]
     Indication: ARTHRALGIA
     Dosage: TOTAL DAILY DOSE: 440 MG  UNIT DOSE: 220 MG
     Dates: start: 20080701
  2. SYNTHROID [Concomitant]
  3. DITROPAN XL [Concomitant]
  4. UNKNOWN BLOOD PRESSURE MEDICATION [Concomitant]

REACTIONS (1)
  - RASH MACULAR [None]
